FAERS Safety Report 24221779 (Version 1)
Quarter: 2024Q3

REPORT INFORMATION
  Report Type: Spontaneous
  Country: US (occurrence: US)
  Receive Date: 20240819
  Receipt Date: 20240819
  Transmission Date: 20241016
  Serious: Yes (Other)
  Sender: CHEPLAPHARM
  Company Number: None

PATIENT
  Age: 78 Year
  Sex: Male

DRUGS (3)
  1. CAPECITABINE [Suspect]
     Active Substance: CAPECITABINE
     Indication: Adenocarcinoma pancreas
     Dosage: 1 ROUND OF ADJUVANT CHEMOTHERAPY
  2. DOCETAXEL [Suspect]
     Active Substance: DOCETAXEL\DOCETAXEL ANHYDROUS
     Indication: Adenocarcinoma pancreas
     Dosage: 1 ROUND OF ADJUVANT CHEMOTHERAPY
  3. GEMCITABINE [Suspect]
     Active Substance: GEMCITABINE
     Indication: Adenocarcinoma pancreas
     Dosage: 1 ROUND OF ADJUVANT CHEMOTHERAPY

REACTIONS (2)
  - Folliculitis [Recovered/Resolved]
  - Herpes zoster [Recovered/Resolved]
